FAERS Safety Report 23405991 (Version 3)
Quarter: 2024Q1

REPORT INFORMATION
  Report Type: Report from Study
  Country: US (occurrence: US)
  Receive Date: 20240116
  Receipt Date: 20240328
  Transmission Date: 20240410
  Serious: Yes (Hospitalization)
  Sender: FDA-Public Use
  Company Number: US-TAKEDA-US202021129

PATIENT
  Age: 70 Year
  Sex: Female

DRUGS (2)
  1. HUMAN IMMUNOGLOBULIN G [Suspect]
     Active Substance: HUMAN IMMUNOGLOBULIN G
     Indication: Primary immunodeficiency syndrome
     Dosage: UNK
     Route: 042
  2. HUMAN IMMUNOGLOBULIN G [Suspect]
     Active Substance: HUMAN IMMUNOGLOBULIN G
     Indication: Hypogammaglobulinaemia

REACTIONS (15)
  - Urinary tract infection [Unknown]
  - Drug hypersensitivity [Unknown]
  - Intervertebral disc disorder [Unknown]
  - Platelet count increased [Unknown]
  - Procedural pain [Unknown]
  - Decreased activity [Unknown]
  - Poor quality sleep [Unknown]
  - Orthosis user [Unknown]
  - Post procedural complication [Unknown]
  - Pain [Unknown]
  - Anaemia [Unknown]
  - Dyspnoea [Unknown]
  - Fatigue [Unknown]
  - Bronchitis [Recovering/Resolving]
  - Product dose omission issue [Unknown]

NARRATIVE: CASE EVENT DATE: 20230511
